FAERS Safety Report 5245424-8 (Version None)
Quarter: 2007Q1

REPORT INFORMATION
  Report Type: 
  Country: None (occurrence: None)
  Receive Date: 20070223
  Receipt Date: 20070212
  Transmission Date: 20070707
  Serious: Yes (Hospitalization)
  Sender: FDA-Public Use
  Company Number: HQWYE890112DEC06

PATIENT
  Sex: Male
  Weight: 99 kg

DRUGS (18)
  1. SIROLIMUS [Suspect]
     Indication: PROPHYLAXIS AGAINST TRANSPLANT REJECTION
     Route: 048
     Dates: start: 20050512, end: 20061120
  2. SIROLIMUS [Suspect]
     Route: 048
     Dates: start: 20061121, end: 20061207
  3. LEVOTHYROXINE SODIUM [Concomitant]
     Indication: HYPERTHYROIDISM
     Route: 048
  4. FISH OIL [Concomitant]
     Indication: HYPERLIPIDAEMIA
     Route: 048
     Dates: end: 20061116
  5. FISH OIL [Concomitant]
     Route: 048
     Dates: start: 20061117
  6. RIFAXIMIN [Concomitant]
     Indication: DIVERTICULUM INTESTINAL
     Dosage: 3 G/10 DAYS/MONTH
  7. FUROSEMIDE [Concomitant]
     Indication: HYPERTENSION
  8. FUROSEMIDE [Concomitant]
     Indication: RENAL FAILURE
     Route: 048
     Dates: start: 20061217, end: 20070116
  9. FUROSEMIDE [Concomitant]
     Route: 048
     Dates: start: 20070117
  10. EPOGEN [Concomitant]
     Indication: ANAEMIA
     Dosage: 5000 UNIT EVERY 10 DAY
     Route: 058
     Dates: end: 20061130
  11. EPOGEN [Concomitant]
     Dosage: 5000 UNIT EVERY 1 WK
     Route: 058
     Dates: end: 20061212
  12. EPOGEN [Concomitant]
     Dosage: 5000 UNIT EVERY 1 WK
     Route: 058
     Dates: start: 20061213, end: 20070116
  13. EPOGEN [Concomitant]
     Dosage: 10000 UNIT EVERY 1 WK
     Route: 058
     Dates: start: 20060117
  14. INSULIN [Concomitant]
     Indication: DIABETES MELLITUS
     Dosage: 16 UNIT EVERY 1 DAY
     Route: 058
  15. ALLOPURINOL SODIUM [Concomitant]
     Indication: HYPERURICAEMIA
     Route: 048
  16. ALLOPURINOL SODIUM [Concomitant]
     Route: 048
     Dates: start: 20061206, end: 20070116
  17. ALLOPURINOL SODIUM [Concomitant]
     Route: 048
     Dates: start: 20070117
  18. IRBESARTAN [Concomitant]
     Indication: HYPERTENSION
     Route: 048

REACTIONS (3)
  - ANAEMIA [None]
  - BRONCHIOLITIS [None]
  - CONDITION AGGRAVATED [None]
